FAERS Safety Report 4887315-8 (Version None)
Quarter: 2005Q4

REPORT INFORMATION
  Report Type: 
  Country: None (occurrence: None)
  Receive Date: 20051221
  Receipt Date: 20050929
  Transmission Date: 20060501
  Serious: No
  Sender: FDA-Public Use
  Company Number: US-YAMANOUCHI-YPA20050514

PATIENT
  Age: 90 Year
  Sex: Female

DRUGS (4)
  1. VESICARE [Suspect]
     Indication: HYPERTONIC BLADDER
     Dosage: 5 MG PO
     Route: 048
     Dates: start: 20050908, end: 20050901
  2. VESICARE [Suspect]
     Indication: HYPERTONIC BLADDER
     Dosage: 2.5 MG PO
     Route: 048
     Dates: start: 20050901
  3. AVAPRO [Concomitant]
  4. QUESTRAN [Concomitant]

REACTIONS (2)
  - CONSTIPATION [None]
  - RASH PRURITIC [None]
